FAERS Safety Report 5161147-8 (Version None)
Quarter: 2006Q4

REPORT INFORMATION
  Report Type: 
  Country: None (occurrence: None)
  Receive Date: 20061121
  Receipt Date: 20061107
  Transmission Date: 20070319
  Serious: Yes (Hospitalization)
  Sender: FDA-Public Use
  Company Number: 2006137403

PATIENT
  Age: 27 Year
  Sex: Female

DRUGS (6)
  1. VFEND [Suspect]
     Indication: ACUTE RESPIRATORY DISTRESS SYNDROME
     Dosage: INTRAVENOUS
     Route: 042
  2. IMIPENEM, CILASTATINE               (IMIPENEM) [Suspect]
     Indication: ACUTE RESPIRATORY DISTRESS SYNDROME
     Dosage: INTRAVENOUS
     Route: 042
  3. TEICOPLANINE (TEICOPLANIN) [Suspect]
     Indication: ACUTE RESPIRATORY DISTRESS SYNDROME
     Dosage: INTRAVENOUS
     Route: 042
     Dates: end: 20060519
  4. ACIDE CLAVULANIQUE SEL DE K; AMOXI (AMOXICILLIN, CLAVULANATE POTASSIUM [Concomitant]
  5. CEFOTAXIME SEL DE NA (CEFOTAXIME SODIUM) [Concomitant]
  6. OFLOXACINE (OFLOXACIN) [Concomitant]

REACTIONS (3)
  - ACINETOBACTER INFECTION [None]
  - ACUTE RESPIRATORY DISTRESS SYNDROME [None]
  - RASH [None]
